FAERS Safety Report 6825354-8 (Version None)
Quarter: 2010Q3

REPORT INFORMATION
  Report Type: 
  Country: None (occurrence: None)
  Receive Date: 20100708
  Receipt Date: 20061219
  Transmission Date: 20110219
  Serious: No
  Sender: FDA-Public Use
  Company Number: US-PFIZER INC-2007001062

PATIENT
  Sex: Female
  Weight: 113.4 kg

DRUGS (9)
  1. CHANTIX [Suspect]
     Indication: SMOKING CESSATION THERAPY
     Dates: start: 20061203
  2. METFORMIN HYDROCHLORIDE [Concomitant]
  3. AMBIEN [Concomitant]
     Indication: INSOMNIA
  4. TICLID [Concomitant]
  5. COREG [Concomitant]
  6. LIPITOR [Concomitant]
  7. ALLEGRA [Concomitant]
  8. ACETYLSALICYLIC ACID [Concomitant]
  9. LOVAZA [Concomitant]

REACTIONS (2)
  - DYSGEUSIA [None]
  - PAROSMIA [None]
